FAERS Safety Report 4885226-5 (Version None)
Quarter: 2005Q4

REPORT INFORMATION
  Report Type: 
  Country: None (occurrence: None)
  Receive Date: 20051216
  Receipt Date: 20051107
  Transmission Date: 20060501
  Serious: No
  Sender: FDA-Public Use
  Company Number: BDI-007703

PATIENT
  Age: 64 Year
  Sex: Female
  Weight: 85 kg

DRUGS (2)
  1. MULTIHANCE [Suspect]
     Indication: BREAST MASS
     Dosage: 20 ML ONCE IV
     Route: 042
     Dates: start: 20051104, end: 20051104
  2. MULTIHANCE [Suspect]
     Indication: NUCLEAR MAGNETIC RESONANCE IMAGING
     Dosage: 20 ML ONCE IV
     Route: 042
     Dates: start: 20051104, end: 20051104

REACTIONS (1)
  - FEELING HOT [None]
